FAERS Safety Report 5362232-8 (Version None)
Quarter: 2007Q2

REPORT INFORMATION
  Report Type: 
  Country: None (occurrence: None)
  Receive Date: 20070619
  Receipt Date: 20070611
  Transmission Date: 20071010
  Serious: Yes (Other)
  Sender: FDA-Public Use
  Company Number: FR-BRISTOL-MYERS SQUIBB COMPANY-13617352

PATIENT
  Age: 47 Year
  Sex: Male

DRUGS (5)
  1. REYATAZ [Suspect]
     Indication: HIV INFECTION
     Route: 048
  2. SAQUINAVIR [Suspect]
     Indication: HIV INFECTION
     Dates: start: 19990101, end: 20050101
  3. RITONAVIR [Suspect]
     Indication: HIV INFECTION
     Dates: start: 19990101, end: 20050101
  4. LAMIVUDINE [Concomitant]
     Indication: HIV INFECTION
     Dates: start: 19990101, end: 20050101
  5. STAVUDINE [Concomitant]
     Indication: HIV INFECTION
     Dates: start: 19990101, end: 20050101

REACTIONS (1)
  - ENCEPHALITIS [None]
